FAERS Safety Report 4740679-8 (Version None)
Quarter: 2005Q3

REPORT INFORMATION
  Report Type: 
  Country: None (occurrence: None)
  Receive Date: 20050801
  Receipt Date: 20050629
  Transmission Date: 20060218
  Serious: No
  Sender: FDA-Public Use
  Company Number: 2005PV000222

PATIENT
  Age: 61 Year
  Sex: Female

DRUGS (4)
  1. BYETTA [Suspect]
     Indication: DIABETES MELLITUS
     Dosage: 5 UG; SC
     Route: 058
     Dates: start: 20050616, end: 20050629
  2. METFORMIN HCL [Concomitant]
  3. SULFONAMIDES, UREA [Concomitant]
  4. DERIVATIVES [Concomitant]

REACTIONS (2)
  - NAUSEA [None]
  - VOMITING [None]
